FAERS Safety Report 8550341-1 (Version None)
Quarter: 2012Q3

REPORT INFORMATION
  Report Type: 
  Country: None (occurrence: None)
  Receive Date: 20120730
  Receipt Date: 20120726
  Transmission Date: 20120928
  Serious: Yes (Hospitalization)
  Sender: FDA-Public Use
  Company Number: JP-PFIZER INC-2012180470

PATIENT
  Age: 81 Year
  Sex: Female

DRUGS (2)
  1. ZOLOFT [Suspect]
     Dosage: 25 MG/DAY
     Route: 048
     Dates: start: 20120714
  2. SENNA-MINT WAF [Suspect]
     Dosage: UNK, 2X/DAY
     Dates: start: 20120722

REACTIONS (8)
  - ABDOMINAL PAIN [None]
  - VOMITING [None]
  - CONSTIPATION [None]
  - HYPONATRAEMIA [None]
  - DECREASED APPETITE [None]
  - HYPERTENSION [None]
  - HEADACHE [None]
  - FUNCTIONAL GASTROINTESTINAL DISORDER [None]
